FAERS Safety Report 7883482-2 (Version None)
Quarter: 2011Q4

REPORT INFORMATION
  Report Type: 
  Country: None (occurrence: None)
  Receive Date: 20111102
  Receipt Date: 20100910
  Transmission Date: 20120403
  Serious: No
  Sender: FDA-Public Use
  Company Number: US-GLAXOSMITHKLINE-A0880673A

PATIENT
  Age: 91 Year
  Sex: Female

DRUGS (4)
  1. RYTHMOL SR [Suspect]
     Indication: ATRIAL FIBRILLATION
     Dosage: 325MG TWICE PER DAY
     Route: 048
  2. MOBIC [Concomitant]
  3. VITAMIN TAB [Concomitant]
  4. SYNTHROID [Concomitant]

REACTIONS (1)
  - DIZZINESS [None]
